FAERS Safety Report 17316601 (Version 2)
Quarter: 2020Q1

REPORT INFORMATION
  Report Type: Spontaneous
  Country: JP (occurrence: JP)
  Receive Date: 20200124
  Receipt Date: 20200316
  Transmission Date: 20200409
  Serious: Yes (Hospitalization)
  Sender: FDA-Public Use
  Company Number: JP-009507513-2001JPN002305J

PATIENT
  Age: 4 Year
  Sex: Male
  Weight: 20 kg

DRUGS (13)
  1. CUBICIN [Suspect]
     Active Substance: DAPTOMYCIN
     Dosage: 100 MILLIGRAM, QD
     Route: 041
     Dates: start: 20191219, end: 20191219
  2. TRICLORYL [Concomitant]
     Active Substance: TRICLOFOS SODIUM
     Dosage: UNK
     Route: 065
  3. RISPERIDONE. [Concomitant]
     Active Substance: RISPERIDONE
     Dosage: UNK
     Route: 048
  4. FLORID [Concomitant]
     Active Substance: MICONAZOLE
     Dosage: UNK
     Route: 048
  5. CARBOCISTEINE [Concomitant]
     Active Substance: CARBOCYSTEINE
     Dosage: UNK
     Route: 065
  6. VANCOMYCIN HYDROCHLORIDE. [Suspect]
     Active Substance: VANCOMYCIN HYDROCHLORIDE
     Dosage: 360 MILLIGRAM, QID
     Route: 041
     Dates: start: 20191216, end: 20191218
  7. AMBROXOL HYDROCHLORIDE [Concomitant]
     Active Substance: AMBROXOL HYDROCHLORIDE
     Dosage: UNK
     Route: 065
  8. LOCOID [Concomitant]
     Active Substance: HYDROCORTISONE BUTYRATE
     Dosage: UNK
     Route: 003
  9. SULBACILLIN [Concomitant]
     Active Substance: AMPICILLIN SODIUM\SULBACTAM SODIUM
     Dosage: UNK
     Route: 051
     Dates: start: 20191119, end: 20191213
  10. FERROMIA [Concomitant]
     Active Substance: SODIUM FERROUS CITRATE
     Dosage: UNK MILLIGRAM
     Route: 048
  11. CERCINE [Concomitant]
     Active Substance: DIAZEPAM
     Dosage: UNK
     Route: 065
  12. TAZOPIPE [Suspect]
     Active Substance: PIPERACILLIN SODIUM\TAZOBACTAM SODIUM
     Dosage: 2000 MILLIGRAM, TID
     Route: 041
     Dates: start: 20191213, end: 20191219
  13. MYSER [Concomitant]
     Dosage: UNK
     Route: 003

REACTIONS (3)
  - Immune system disorder [Unknown]
  - Erythema [Recovering/Resolving]
  - Rash [Recovering/Resolving]

NARRATIVE: CASE EVENT DATE: 20191219
